FAERS Safety Report 8444036 (Version 2)
Quarter: 2012Q4

REPORT INFORMATION
  Report Type: Spontaneous
  Country: FR (occurrence: None)
  Receive Date: 20120224
  Receipt Date: 20120911
  Transmission Date: 20130627
  Serious: Yes (Other)
  Sender: FDA-Public Use
  Company Number: 1200346

PATIENT
  Age: 11 Year
  Sex: Female

DRUGS (3)
  1. PIPERACILLIN AND TAZOBACTAM [Suspect]
     Indication: FEBRILE NEUTROPENIA
  2. VINCRISTINE SULFATE [Suspect]
     Indication: ACUTE LYMPHOCYTIC LEUKAEMIA
  3. CHEMOTHERAPEUTICS [Concomitant]

REACTIONS (5)
  - Drug interaction [None]
  - Autonomic neuropathy [None]
  - Intestinal obstruction [None]
  - Cholestasis [None]
  - Neurotoxicity [None]
